FAERS Safety Report 4267171-1 (Version None)
Quarter: 2004Q1

REPORT INFORMATION
  Report Type: 
  Country: None (occurrence: None)
  Receive Date: 20040107
  Receipt Date: 20031224
  Transmission Date: 20041129
  Serious: Yes (Disabling)
  Sender: FDA-Public Use
  Company Number: 2003GB03151

PATIENT
  Age: 53 Year
  Sex: Female
  Weight: 96 kg

DRUGS (7)
  1. ZOLADEX [Suspect]
     Indication: PREMENSTRUAL SYNDROME
     Dates: start: 19891201, end: 19901201
  2. NOT SPECIFIED [Concomitant]
  3. THYROXINE [Concomitant]
  4. SEROXAT [Concomitant]
  5. DITROPAN [Concomitant]
  6. DICLOFENAC SODIUM [Concomitant]
  7. CO-CODAMOL [Concomitant]

REACTIONS (1)
  - LOCALISED OSTEOARTHRITIS [None]
